FAERS Safety Report 13915823 (Version 1)
Quarter: 2017Q3

REPORT INFORMATION
  Report Type: Spontaneous
  Country: IN (occurrence: IN)
  Receive Date: 20170829
  Receipt Date: 20170829
  Transmission Date: 20171127
  Serious: No
  Sender: FDA-Public Use
  Company Number: IN-CIPLA LTD.-2017IN13666

PATIENT

DRUGS (1)
  1. X-PLAT [Suspect]
     Active Substance: OXALIPLATIN
     Dosage: 100 MG, UNK

REACTIONS (3)
  - Pruritus generalised [Recovering/Resolving]
  - Swelling face [Recovering/Resolving]
  - Hypoaesthesia oral [Recovering/Resolving]
